FAERS Safety Report 7932155-6 (Version None)
Quarter: 2011Q4

REPORT INFORMATION
  Report Type: 
  Country: None (occurrence: None)
  Receive Date: 20111121
  Receipt Date: 20111111
  Transmission Date: 20120403
  Serious: Yes (Other)
  Sender: FDA-Public Use
  Company Number: US-ASTRAZENECA-2011SE68606

PATIENT
  Age: 50 Year
  Sex: Male

DRUGS (9)
  1. SEROQUEL [Suspect]
     Route: 048
  2. SEROQUEL [Suspect]
     Route: 048
  3. SEROQUEL [Suspect]
     Route: 048
  4. PERCOCET [Concomitant]
     Indication: PAIN
  5. PERCOCET [Concomitant]
     Dosage: 2-3 TABLETS EVERY 4-6 HOURS
  6. SEROQUEL [Suspect]
     Indication: DEPRESSION
     Route: 048
     Dates: start: 20110601
  7. SEROQUEL [Suspect]
     Indication: SLEEP DISORDER
     Route: 048
     Dates: start: 20110601
  8. SEROQUEL [Suspect]
     Route: 048
  9. PERCOCET [Concomitant]

REACTIONS (6)
  - LOWER LIMB FRACTURE [None]
  - DRUG INEFFECTIVE FOR UNAPPROVED INDICATION [None]
  - INSOMNIA [None]
  - JOINT DISLOCATION [None]
  - OFF LABEL USE [None]
  - PAIN [None]
